FAERS Safety Report 23682732 (Version 1)
Quarter: 2024Q1

REPORT INFORMATION
  Report Type: Report from Study
  Country: CA (occurrence: CA)
  Receive Date: 20240328
  Receipt Date: 20240328
  Transmission Date: 20240410
  Serious: Yes (Other)
  Sender: FDA-Public Use
  Company Number: CA-OTSUKA-2024_007845

PATIENT
  Sex: Male

DRUGS (4)
  1. TOLVAPTAN [Suspect]
     Active Substance: TOLVAPTAN
     Indication: Product used for unknown indication
     Dosage: 60 MG, QD (IN THE MORNING)
     Route: 048
  2. TOLVAPTAN [Suspect]
     Active Substance: TOLVAPTAN
     Dosage: 30 MG, QD (IN THE EVENING)
     Route: 048
  3. TOLVAPTAN [Suspect]
     Active Substance: TOLVAPTAN
     Dosage: HALF THE RECOMMENDED DAILY DOSE
     Route: 048
  4. TOLVAPTAN [Suspect]
     Active Substance: TOLVAPTAN
     Dosage: FULL RECOMMENDED DOSE
     Route: 048

REACTIONS (1)
  - Hyperbaric oxygen therapy [Unknown]
